FAERS Safety Report 9228801 (Version 5)
Quarter: 2013Q2

REPORT INFORMATION
  Report Type: Report from Study
  Country: DE (occurrence: DE)
  Receive Date: 20130412
  Receipt Date: 20130628
  Transmission Date: 20140414
  Serious: Yes (Hospitalization, Other)
  Sender: FDA-Public Use
  Company Number: DE-ABBOTT-13P-062-1073599-00

PATIENT
  Age: 27 Year
  Sex: Male
  Weight: 78 kg

DRUGS (10)
  1. PREDNISONE [Concomitant]
     Indication: CROHN^S DISEASE
     Dates: start: 200110, end: 200904
  2. PREDNISONE [Concomitant]
     Indication: INFLAMMATORY BOWEL DISEASE
     Dosage: START DOSE 60 MG REDUCTION OF DOSE TO 0 MG
     Dates: start: 20111002, end: 20111118
  3. PREDNISONE [Concomitant]
     Indication: ILEITIS
  4. AZATHIOPRINE [Concomitant]
     Indication: CROHN^S DISEASE
     Dates: start: 200201, end: 200906
  5. AZATHIOPRINE [Concomitant]
  6. PAROXETIN [Concomitant]
     Indication: DEPRESSION
     Dates: start: 20101229
  7. NEXIUM [Concomitant]
     Indication: GASTROOESOPHAGEAL REFLUX DISEASE
     Dates: start: 201012
  8. FOLSAN [Concomitant]
     Indication: MACROCYTOSIS
     Dosage: 1X5 MG
     Dates: start: 20101027
  9. HUMIRA [Suspect]
     Indication: CROHN^S DISEASE
     Route: 058
     Dates: start: 20090129, end: 20130328
  10. TIORFAN [Concomitant]
     Indication: DIARRHOEA
     Dosage: ON DEMAND, HIGHEST DOSE QID
     Dates: start: 20090119

REACTIONS (2)
  - Renal failure [Not Recovered/Not Resolved]
  - Crohn^s disease [Recovered/Resolved]
